FAERS Safety Report 16257144 (Version 1)
Quarter: 2019Q2

REPORT INFORMATION
  Report Type: Spontaneous
  Country: NL (occurrence: NL)
  Receive Date: 20190430
  Receipt Date: 20190430
  Transmission Date: 20190711
  Serious: Yes (Hospitalization)
  Sender: FDA-Public Use
  Company Number: NL-TEVA-2018-NL-857766

PATIENT
  Age: 23 Year
  Sex: Female
  Weight: 109 kg

DRUGS (1)
  1. ETHINYLESTRADIOL/LEVONORGESTREL TABLET [Suspect]
     Active Substance: ETHINYL ESTRADIOL\LEVONORGESTREL
     Indication: CONTRACEPTION
     Dosage: 1 X PER DAY 1 PIECE
     Route: 065
     Dates: start: 20080101, end: 20171208

REACTIONS (1)
  - Hepatic adenoma [Unknown]

NARRATIVE: CASE EVENT DATE: 20171208
